FAERS Safety Report 22298966 (Version 1)
Quarter: 2023Q2

REPORT INFORMATION
  Report Type: Spontaneous
  Country: US (occurrence: None)
  Receive Date: 20230508
  Receipt Date: 20230508
  Transmission Date: 20230721
  Serious: No
  Sender: FDA-Public Use
  Company Number: None

PATIENT
  Sex: Male

DRUGS (1)
  1. DIMETHYL FUMARATE [Suspect]
     Active Substance: DIMETHYL FUMARATE
     Dosage: OTHER FREQUENCY : OTHER;?
     Route: 048

REACTIONS (6)
  - Taste disorder [None]
  - Decreased appetite [None]
  - Asthenia [None]
  - Marburg^s variant multiple sclerosis [None]
  - Weight decreased [None]
  - Malnutrition [None]
